FAERS Safety Report 14525791 (Version 1)
Quarter: 2018Q1

REPORT INFORMATION
  Report Type: Report from Study
  Country: US (occurrence: US)
  Receive Date: 20180213
  Receipt Date: 20180213
  Transmission Date: 20180509
  Serious: Yes (Other)
  Sender: FDA-Public Use
  Company Number: US-AUROBINDO-AUR-APL-2018-005932

PATIENT

DRUGS (2)
  1. METHYLPREDNISOLONE 500MG/VIAL [Suspect]
     Active Substance: METHYLPREDNISOLONE
     Dosage: 2 MG/KG, UNK
     Route: 042
  2. METHYLPREDNISOLONE 500MG/VIAL [Suspect]
     Active Substance: METHYLPREDNISOLONE
     Indication: VENOOCCLUSIVE LIVER DISEASE
     Dosage: 500 MG/M2, EVERY 12 HOURS
     Route: 042

REACTIONS (2)
  - Neuroblastoma [Recovered/Resolved]
  - Hyperglycaemia [Recovered/Resolved]
